FAERS Safety Report 5788222-9 (Version None)
Quarter: 2008Q2

REPORT INFORMATION
  Report Type: 
  Country: None (occurrence: None)
  Receive Date: 20080623
  Receipt Date: 20080614
  Transmission Date: 20081010
  Serious: Yes (Life-Threatening)
  Sender: FDA-Public Use
  Company Number: 2008TJ0140

PATIENT
  Age: 16 Year
  Sex: Female

DRUGS (4)
  1. TWINJECT (EPINEPHRINE) TWINJECT AUTO-INJECTOR, TWO PACK [Suspect]
     Indication: HYPERSENSITIVITY
     Dosage: SUBCUTANEOUS/INTRAMUSCULAR
     Route: 030
     Dates: start: 20080609
  2. ALLERGY DROPS [Concomitant]
  3. BIRTH CONTROL PILLS [Concomitant]
  4. CLARINEX-D [Concomitant]

REACTIONS (2)
  - DEVICE MALFUNCTION [None]
  - PHARMACEUTICAL PRODUCT COMPLAINT [None]
